FAERS Safety Report 14967186 (Version 1)
Quarter: 2018Q2

REPORT INFORMATION
  Report Type: Spontaneous
  Country: ES (occurrence: ES)
  Receive Date: 20180604
  Receipt Date: 20180604
  Transmission Date: 20180711
  Serious: Yes (Hospitalization, Other)
  Sender: FDA-Public Use
  Company Number: ES-CHEPLA-C20170691_A

PATIENT
  Age: 40 Year
  Sex: Female

DRUGS (2)
  1. ATRA [Suspect]
     Active Substance: TRETINOIN
     Indication: ACUTE PROMYELOCYTIC LEUKAEMIA
     Dosage: PETHEMA LPA2012 PROTOCOL - 45 MG/M2/24H CONTINOUSLY UNTIL COMPLETE REMISSION
     Route: 048
  2. IDARUBICIN [Suspect]
     Active Substance: IDARUBICIN
     Indication: ACUTE PROMYELOCYTIC LEUKAEMIA
     Dosage: 12 MG/M2/24 H ON DAY 2,4,6,8

REACTIONS (5)
  - Pre-eclampsia [Recovered/Resolved]
  - Oligohydramnios [Recovered/Resolved]
  - Exposure during pregnancy [Recovered/Resolved]
  - Caesarean section [Recovered/Resolved]
  - Premature baby [Recovered/Resolved]
